FAERS Safety Report 23099532 (Version 1)
Quarter: 2023Q4

REPORT INFORMATION
  Report Type: Spontaneous
  Country: GB (occurrence: None)
  Receive Date: 20231021
  Receipt Date: 20231021
  Transmission Date: 20240109
  Serious: Yes (Disabling, Other)
  Sender: FDA-Public Use
  Company Number: None

PATIENT
  Age: 36 Year
  Sex: Female

DRUGS (1)
  1. IMPLANON [Suspect]
     Active Substance: ETONOGESTREL

REACTIONS (11)
  - Swelling face [None]
  - Swelling [None]
  - Generalised oedema [None]
  - Fatigue [None]
  - Oropharyngeal pain [None]
  - Rash [None]
  - Food allergy [None]
  - Perfume sensitivity [None]
  - Dermatitis contact [None]
  - Toxicity to various agents [None]
  - Loss of personal independence in daily activities [None]

NARRATIVE: CASE EVENT DATE: 20070315
